FAERS Safety Report 7998216-0 (Version None)
Quarter: 2011Q4

REPORT INFORMATION
  Report Type: 
  Country: None (occurrence: None)
  Receive Date: 20111221
  Receipt Date: 20110415
  Transmission Date: 20120403
  Serious: No
  Sender: FDA-Public Use
  Company Number: US-GLAXOSMITHKLINE-A0923201A

PATIENT
  Age: 67 Year
  Sex: Male

DRUGS (8)
  1. NIACIN [Concomitant]
  2. ARTANE [Concomitant]
  3. HYDROCHLOROTHIAZIDE [Concomitant]
  4. HALDOL [Concomitant]
  5. LOVAZA [Suspect]
     Indication: BLOOD TRIGLYCERIDES INCREASED
     Dosage: 2CAP TWICE PER DAY
     Route: 048
     Dates: start: 20100517, end: 20110412
  6. RED YEAST RICE [Concomitant]
  7. QUINAPRIL [Concomitant]
  8. MEPROBAMATE [Concomitant]

REACTIONS (2)
  - LOW DENSITY LIPOPROTEIN INCREASED [None]
  - DRUG INEFFECTIVE [None]
